FAERS Safety Report 15682199 (Version 1)
Quarter: 2018Q4

REPORT INFORMATION
  Report Type: Spontaneous
  Country: ZA (occurrence: ZA)
  Receive Date: 20181203
  Receipt Date: 20181203
  Transmission Date: 20190205
  Serious: Yes (Hospitalization)
  Sender: FDA-Public Use
  Company Number: ZA-MYLANLABS-2018M1090150

PATIENT
  Age: 27 Year
  Sex: Female
  Weight: 44 kg

DRUGS (1)
  1. ZOVILAM (LAMIVUDINE / ZIDOVUDINE 150MG/300MG TABLETS) [Suspect]
     Active Substance: LAMIVUDINE\ZIDOVUDINE
     Indication: ANTIRETROVIRAL THERAPY
     Dosage: UNK,300/300 MG
     Route: 048
     Dates: start: 20181108, end: 20181128

REACTIONS (3)
  - Eye swelling [Unknown]
  - Rash [Unknown]
  - Swelling face [Unknown]

NARRATIVE: CASE EVENT DATE: 20181120
